FAERS Safety Report 5291397-1 (Version None)
Quarter: 2007Q2

REPORT INFORMATION
  Report Type: 
  Country: None (occurrence: None)
  Receive Date: 20070402
  Receipt Date: 20070315
  Transmission Date: 20071010
  Serious: Yes (Hospitalization)
  Sender: FDA-Public Use
  Company Number: DSA_29648_2007

PATIENT
  Age: 87 Year
  Sex: Female

DRUGS (15)
  1. DILTIAZEM [Suspect]
     Indication: BLOOD PRESSURE INCREASED
     Dosage: DF PO
     Route: 048
  2. ARICEPT [Suspect]
     Dosage: DF PO
     Route: 048
     Dates: end: 20061023
  3. MIANSERIN [Suspect]
     Dosage: DF PO
     Route: 048
     Dates: end: 20061023
  4. OMEPRAZOLE [Suspect]
     Dosage: DF PO
     Route: 048
     Dates: end: 20061023
  5. FUROSEMIDE [Suspect]
     Dosage: DF PO
     Route: 048
     Dates: end: 20061023
  6. AMIODARONE HCL [Suspect]
     Dosage: DF PO
     Route: 048
  7. DAFALGAN [Concomitant]
  8. DIFFU K [Concomitant]
  9. DUSPATALIN /00139402/ [Concomitant]
  10. COLCHIMAX /00728901/ [Concomitant]
  11. ALPRAZOLAM [Concomitant]
  12. PLAVIX [Concomitant]
  13. MONICOR [Concomitant]
  14. LEVOTHYROXINE SODIUM [Concomitant]
  15. UMULINE [Concomitant]

REACTIONS (11)
  - ABDOMINAL PAIN [None]
  - ALANINE AMINOTRANSFERASE INCREASED [None]
  - ASPARTATE AMINOTRANSFERASE INCREASED [None]
  - ASTHENIA [None]
  - BLOOD ALKALINE PHOSPHATASE INCREASED [None]
  - C-REACTIVE PROTEIN INCREASED [None]
  - CELL DEATH [None]
  - CHOLESTASIS [None]
  - GAMMA-GLUTAMYLTRANSFERASE INCREASED [None]
  - LIVER FUNCTION TEST ABNORMAL [None]
  - NAUSEA [None]
